FAERS Safety Report 7243963-1 (Version None)
Quarter: 2011Q1

REPORT INFORMATION
  Report Type: 
  Country: None (occurrence: None)
  Receive Date: 20110125
  Receipt Date: 20110111
  Transmission Date: 20110831
  Serious: Yes (Other)
  Sender: FDA-Public Use
  Company Number: PHHY2011US02503

PATIENT
  Sex: Female

DRUGS (2)
  1. RECLAST [Suspect]
     Dates: start: 20090911
  2. MULTIVITAMIN [Concomitant]

REACTIONS (12)
  - WEIGHT DECREASED [None]
  - TREMOR [None]
  - NECK PAIN [None]
  - ARTERIAL OCCLUSIVE DISEASE [None]
  - BALANCE DISORDER [None]
  - MUSCLE ATROPHY [None]
  - MUSCULOSKELETAL PAIN [None]
  - SWELLING [None]
  - SYNCOPE [None]
  - ARTHRALGIA [None]
  - INFLUENZA LIKE ILLNESS [None]
  - MEMORY IMPAIRMENT [None]
